FAERS Safety Report 9129307 (Version 1)
Quarter: 2013Q1

REPORT INFORMATION
  Report Type: Spontaneous
  Country: US (occurrence: US)
  Receive Date: 20130125
  Receipt Date: 20130125
  Transmission Date: 20140127
  Serious: Yes (Hospitalization)
  Sender: FDA-Public Use
  Company Number: US-GILEAD-2013-0068349

PATIENT
  Age: 80 Year
  Sex: Male

DRUGS (1)
  1. LETAIRIS [Suspect]
     Indication: PRODUCT USED FOR UNKNOWN INDICATION
     Dosage: 5 MG, QD
     Route: 048
     Dates: start: 20121130, end: 20121226

REACTIONS (6)
  - Pulmonary fibrosis [Unknown]
  - Alveolitis allergic [Unknown]
  - Pneumonia [Unknown]
  - Lung infection [Unknown]
  - Dyspnoea [Unknown]
  - Oedema peripheral [Unknown]
